FAERS Safety Report 16125771 (Version 1)
Quarter: 2019Q1

REPORT INFORMATION
  Report Type: Spontaneous
  Country: FR (occurrence: FR)
  Receive Date: 20190328
  Receipt Date: 20190328
  Transmission Date: 20190418
  Serious: Yes (Hospitalization, Other)
  Sender: FDA-Public Use
  Company Number: FR-AUROBINDO-AUR-APL-2019-015997

PATIENT

DRUGS (4)
  1. RIFADINE [Suspect]
     Active Substance: RIFAMPIN
     Indication: POSTOPERATIVE WOUND INFECTION
     Dosage: 750 MILLIGRAM, ONCE A DAY
     Route: 048
     Dates: start: 20190131, end: 20190208
  2. BACTRIM [Suspect]
     Active Substance: SULFAMETHOXAZOLE\TRIMETHOPRIM
     Indication: POSTOPERATIVE WOUND INFECTION
     Dosage: 3 DOSAGE FORM, ONCE A DAY
     Route: 048
     Dates: start: 20190131, end: 20190211
  3. PARACETAMOL [Suspect]
     Active Substance: ACETAMINOPHEN
     Indication: PAIN
     Dosage: 4 GRAM, ONCE A DAY
     Route: 048
     Dates: start: 20190131, end: 20190212
  4. TRAMADOL. [Suspect]
     Active Substance: TRAMADOL
     Indication: PAIN
     Dosage: 300 MILLIGRAM, ONCE A DAY
     Route: 048
     Dates: start: 20190131

REACTIONS (2)
  - Hepatocellular injury [Recovering/Resolving]
  - Cholestasis [Recovering/Resolving]

NARRATIVE: CASE EVENT DATE: 20180204
